FAERS Safety Report 24303620 (Version 1)
Quarter: 2024Q3

REPORT INFORMATION
  Report Type: Spontaneous
  Country: FR (occurrence: FR)
  Receive Date: 20240910
  Receipt Date: 20240910
  Transmission Date: 20241017
  Serious: Yes (Hospitalization)
  Sender: PFIZER
  Company Number: None

PATIENT
  Age: 36 Year
  Sex: Male
  Weight: 72.9 kg

DRUGS (5)
  1. DAPTOMYCIN [Suspect]
     Active Substance: DAPTOMYCIN
     Indication: Postoperative wound infection
     Dosage: 600 MG, 1X/DAY
     Route: 042
     Dates: start: 20240619, end: 20240625
  2. BACTRIM [Suspect]
     Active Substance: SULFAMETHOXAZOLE\TRIMETHOPRIM
     Indication: Postoperative wound infection
     Dosage: 3 DF, 1X/DAY
     Route: 048
     Dates: start: 20240625, end: 20240628
  3. CLINDAMYCIN HYDROCHLORIDE [Concomitant]
     Active Substance: CLINDAMYCIN HYDROCHLORIDE
     Indication: Postoperative wound infection
     Dosage: 900 MG, 3X/DAY
     Route: 048
     Dates: start: 20240628, end: 20240705
  4. CEFEPIME [Concomitant]
     Active Substance: CEFEPIME HYDROCHLORIDE
     Indication: Postoperative wound infection
     Dosage: 6 G, 1X/DAY
     Route: 042
     Dates: start: 20240619, end: 20240624
  5. CEFAZOLIN [Concomitant]
     Active Substance: CEFAZOLIN
     Indication: Postoperative wound infection
     Dosage: 8 G, 1X/DAY
     Route: 042
     Dates: start: 20240708

REACTIONS (2)
  - Liver injury [Recovering/Resolving]
  - Off label use [Unknown]

NARRATIVE: CASE EVENT DATE: 20240619
